FAERS Safety Report 22214773 (Version 1)
Quarter: 2023Q2

REPORT INFORMATION
  Report Type: Spontaneous
  Country: US (occurrence: US)
  Receive Date: 20230415
  Receipt Date: 20230415
  Transmission Date: 20230721
  Serious: No
  Sender: FDA-Public Use
  Company Number: US-ABBVIE-4698211

PATIENT
  Sex: Female

DRUGS (1)
  1. SYNTHROID [Suspect]
     Active Substance: LEVOTHYROXINE SODIUM
     Indication: Product used for unknown indication
     Route: 048

REACTIONS (17)
  - Arthralgia [Unknown]
  - Chest discomfort [Unknown]
  - Asthenia [Unknown]
  - Hormone level abnormal [Unknown]
  - Hypothyroidism [Unknown]
  - Chest pain [Unknown]
  - Bone pain [Unknown]
  - Insomnia [Unknown]
  - Headache [Unknown]
  - Muscular weakness [Unknown]
  - Feeling abnormal [Unknown]
  - Fatigue [Unknown]
  - Weight increased [Unknown]
  - Pain [Unknown]
  - Myalgia [Unknown]
  - Pain in extremity [Unknown]
  - Insomnia [Unknown]
